FAERS Safety Report 25719733 (Version 1)
Quarter: 2025Q3

REPORT INFORMATION
  Report Type: Spontaneous
  Country: US (occurrence: US)
  Receive Date: 20250825
  Receipt Date: 20250825
  Transmission Date: 20251021
  Serious: No
  Sender: ALEXION PHARMACEUTICALS
  Company Number: US-AstraZeneca-CH-00933878AP

PATIENT
  Sex: Female

DRUGS (2)
  1. BREZTRI [Suspect]
     Active Substance: BUDESONIDE\FORMOTEROL\GLYCOPYRROLATE
     Indication: Chronic obstructive pulmonary disease
  2. BEVESPI AEROSPHERE [Suspect]
     Active Substance: FORMOTEROL FUMARATE\GLYCOPYRROLATE
     Indication: Chronic obstructive pulmonary disease
     Route: 065

REACTIONS (10)
  - Disease progression [Unknown]
  - Dyspnoea [Unknown]
  - Unevaluable event [Unknown]
  - Device use issue [Unknown]
  - Device physical property issue [Unknown]
  - Incorrect dose administered [Unknown]
  - Device delivery system issue [Unknown]
  - No adverse event [Unknown]
  - Device delivery system issue [Unknown]
  - Therapy change [Unknown]
